FAERS Safety Report 4517833-3 (Version None)
Quarter: 2004Q4

REPORT INFORMATION
  Report Type: 
  Country: None (occurrence: None)
  Receive Date: 20041130
  Receipt Date: 20041108
  Transmission Date: 20050328
  Serious: Yes (Hospitalization)
  Sender: FDA-Public Use
  Company Number: 2004-BP-12001NB

PATIENT
  Age: 73 Year
  Sex: Male

DRUGS (15)
  1. MICARDIS [Suspect]
     Indication: HYPERTENSION
     Dosage: 40 MG , PO
     Route: 048
     Dates: start: 20040527, end: 20041012
  2. AMARYL (GLIMEPIRIDE) (TA) [Concomitant]
  3. PREDNISOLONE [Concomitant]
  4. FOLIAMIN (FOLIC ACID) (TA) [Concomitant]
  5. RHEUMATEX (METHOTREXATE SODIUM) (KA) [Concomitant]
  6. SHAKUYAKU-KANZO-TO (PL) [Concomitant]
  7. NAUZELIN (DOMEPERIDONE) (TA) [Concomitant]
  8. FAMOTIDINE [Concomitant]
  9. MUCOSTA (REBAMIPIDE) (TA) [Concomitant]
  10. YODEL S (TA) [Concomitant]
  11. SELTOUCH (FELBINAC) (TA) [Concomitant]
  12. CRAVIT (LEVOFLOXACIN) (TA) [Concomitant]
  13. MEVALOTIN (PRAVASTATIN SODIUM) (TA) [Concomitant]
  14. BASEN (VOGLIBOSE) (TA) [Concomitant]
  15. BLOPRESS (CANDESARTAN CILEXETIL) (TA) [Concomitant]

REACTIONS (1)
  - PNEUMONIA [None]
